FAERS Safety Report 9838293 (Version 1)
Quarter: 2014Q1

REPORT INFORMATION
  Report Type: Spontaneous
  Country: US (occurrence: US)
  Receive Date: 20140123
  Receipt Date: 20140123
  Transmission Date: 20141002
  Serious: Yes (Other)
  Sender: FDA-Public Use
  Company Number: US-ASTRAZENECA-2014SE03952

PATIENT
  Sex: Female

DRUGS (1)
  1. NEXIUM [Suspect]
     Route: 048

REACTIONS (9)
  - Extranodal marginal zone B-cell lymphoma (MALT type) [Unknown]
  - Helicobacter infection [Unknown]
  - Barrett^s oesophagus [Unknown]
  - Oesophagitis ulcerative [Unknown]
  - Hiatus hernia [Unknown]
  - Gastrooesophageal reflux disease [Unknown]
  - Gastrointestinal disorder [Unknown]
  - General symptom [Unknown]
  - Intentional drug misuse [Unknown]
